FAERS Safety Report 18579812 (Version 6)
Quarter: 2022Q2

REPORT INFORMATION
  Report Type: Spontaneous
  Country: US (occurrence: US)
  Receive Date: 20201204
  Receipt Date: 20220617
  Transmission Date: 20220720
  Serious: No
  Sender: FDA-Public Use
  Company Number: US-BIOGEN-2020BI00952753

PATIENT
  Sex: Female

DRUGS (2)
  1. TYSABRI [Suspect]
     Active Substance: NATALIZUMAB
     Indication: Multiple sclerosis
     Dosage: INFUSED OVER 1 HOUR
     Route: 065
     Dates: start: 20130212, end: 201911
  2. TYSABRI [Suspect]
     Active Substance: NATALIZUMAB
     Dosage: HAD AN INFUSION SINCE 8/25
     Route: 065
     Dates: end: 202202

REACTIONS (1)
  - Multiple sclerosis relapse [Unknown]
